FAERS Safety Report 8765589 (Version 1)
Quarter: 2012Q4

REPORT INFORMATION
  Report Type: 
  Country: CA (occurrence: CA)
  Receive Date: 20120903
  Receipt Date: 20120903
  Transmission Date: 20130627
  Serious: Yes (Other)
  Sender: FDA-Public Use
  Company Number: CA-BRISTOL-MYERS SQUIBB COMPANY-16892481

PATIENT
  Age: 72 Year
  Sex: Female

DRUGS (8)
  1. ORENCIA [Suspect]
     Indication: RHEUMATOID ARTHRITIS
     Dosage: therapy start date: Oct/Nov 2010
last inf in Nov11
     Route: 042
     Dates: start: 2010
  2. METFORMIN [Concomitant]
  3. FOLIC ACID [Concomitant]
  4. METHOTREXATE SODIUM INJ [Concomitant]
     Dosage: inj
  5. AMLODIPINE [Concomitant]
  6. AVAPRO [Concomitant]
  7. LIPITOR [Concomitant]
  8. LEFLUNOMIDE [Concomitant]

REACTIONS (1)
  - Intestinal perforation [Unknown]
